FAERS Safety Report 18701589 (Version 1)
Quarter: 2021Q1

REPORT INFORMATION
  Report Type: Spontaneous
  Country: US (occurrence: US)
  Receive Date: 20210105
  Receipt Date: 20210105
  Transmission Date: 20210419
  Serious: Yes (Disabling)
  Sender: FDA-Public Use
  Company Number: None

PATIENT
  Age: 61 Year
  Sex: Male
  Weight: 89.1 kg

DRUGS (8)
  1. KANK?A [Suspect]
     Active Substance: BENZOCAINE
     Indication: TOOTHACHE
     Dosage: ?          OTHER STRENGTH:AS NEEDED FOR PAIN;?
     Route: 048
     Dates: start: 20210103, end: 20210103
  2. STATIN [Concomitant]
     Active Substance: UNSPECIFIED INGREDIENT
  3. MAGNESIUM [Concomitant]
     Active Substance: MAGNESIUM
  4. TURMERIC [Concomitant]
     Active Substance: HERBALS\TURMERIC
  5. BIOFLAVONOID [Concomitant]
     Active Substance: BIOFLAVONOIDS
  6. IBUPROFEN. [Concomitant]
     Active Substance: IBUPROFEN
  7. D?3 [Concomitant]
     Active Substance: CHOLECALCIFEROL
  8. ACETAMINOPHEN. [Concomitant]
     Active Substance: ACETAMINOPHEN

REACTIONS (1)
  - Hypoaesthesia oral [None]

NARRATIVE: CASE EVENT DATE: 20210103
